FAERS Safety Report 15675665 (Version 2)
Quarter: 2018Q4

REPORT INFORMATION
  Report Type: Spontaneous
  Country: US (occurrence: US)
  Receive Date: 20181130
  Receipt Date: 20181210
  Transmission Date: 20190205
  Serious: No
  Sender: FDA-Public Use
  Company Number: US-ASTRAZENECA-2009BM01929

PATIENT
  Age: 66 Year
  Sex: Female
  Weight: 97.5 kg

DRUGS (7)
  1. BYETTA [Suspect]
     Active Substance: EXENATIDE
     Indication: TYPE 2 DIABETES MELLITUS
     Dosage: 5 MCG, BID
     Route: 058
     Dates: start: 2007
  2. METFORMIN [Concomitant]
     Active Substance: METFORMIN HYDROCHLORIDE
     Dosage: UNK
  3. BYDUREON BCISE [Suspect]
     Active Substance: EXENATIDE
     Indication: TYPE 2 DIABETES MELLITUS
     Route: 058
     Dates: start: 201810
  4. EXENATIDE. [Concomitant]
     Active Substance: EXENATIDE
     Dosage: 5MCG PEN, DISPOSABLE DEVICE
  5. BYETTA [Suspect]
     Active Substance: EXENATIDE
     Indication: TYPE 2 DIABETES MELLITUS
     Route: 058
  6. BYETTA [Suspect]
     Active Substance: EXENATIDE
     Indication: TYPE 2 DIABETES MELLITUS
     Dosage: DISPOSABLE DEVICE
     Route: 065
  7. EXENATIDE. [Concomitant]
     Active Substance: EXENATIDE
     Dosage: 10MCG PEN, DISPOSABLE DEVICE

REACTIONS (8)
  - Arthritis [Not Recovered/Not Resolved]
  - Incorrect dose administered [Unknown]
  - Injection site injury [Unknown]
  - Injection site erythema [Unknown]
  - Memory impairment [Not Recovered/Not Resolved]
  - Blood glucose increased [Not Recovered/Not Resolved]
  - Muscular weakness [Unknown]
  - Device issue [Unknown]

NARRATIVE: CASE EVENT DATE: 2009
